FAERS Safety Report 4609428-8 (Version None)
Quarter: 2005Q2

REPORT INFORMATION
  Report Type: 
  Country: None (occurrence: None)
  Receive Date: 20050301
  Receipt Date: 20041028
  Transmission Date: 20051028
  Serious: No
  Sender: FDA-Public Use
  Company Number: WAES 0410USA04272

PATIENT
  Age: 32 Year
  Sex: Male

DRUGS (9)
  1. ZETIA [Suspect]
     Indication: BLOOD CHOLESTEROL INCREASED
     Dosage: 10 MG/DAILY/PO
     Route: 048
     Dates: start: 20041020, end: 20041023
  2. CLINORIL [Concomitant]
  3. LORTAB [Concomitant]
  4. PROTONIX [Concomitant]
  5. ZOCOR [Concomitant]
  6. BUPROPION HYDROCHLORIDE [Concomitant]
  7. HYDROXYZINE HYDROCHLORIDE [Concomitant]
  8. METOPROLOL [Concomitant]
  9. TRAZODONE HCL [Concomitant]

REACTIONS (2)
  - PENILE BLISTER [None]
  - RASH [None]
